FAERS Safety Report 9014631 (Version 1)
Quarter: 2013Q1

REPORT INFORMATION
  Report Type: Spontaneous
  Country: GB (occurrence: GB)
  Receive Date: 20130115
  Receipt Date: 20130115
  Transmission Date: 20140127
  Serious: Yes (Other)
  Sender: FDA-Public Use
  Company Number: GB-TEVA-380113ISR

PATIENT
  Age: 40 Year
  Sex: Female
  Weight: 75.5 kg

DRUGS (4)
  1. AMITRIPTYLINE [Suspect]
     Dates: start: 20120626
  2. ZAPAIN [Concomitant]
     Dates: start: 20120626, end: 20120907
  3. IBUPROFEN [Concomitant]
     Dates: start: 20120711, end: 20120721
  4. CITALOPRAM [Concomitant]
     Dates: start: 20120914, end: 20120914

REACTIONS (4)
  - Mastication disorder [Recovered/Resolved]
  - Local swelling [Recovered/Resolved]
  - Dysphagia [Recovered/Resolved]
  - Neck pain [Recovered/Resolved]
